FAERS Safety Report 4625600-5 (Version None)
Quarter: 2005Q1

REPORT INFORMATION
  Report Type: 
  Country: None (occurrence: None)
  Receive Date: 20050331
  Receipt Date: 20050331
  Transmission Date: 20050727
  Serious: Yes (Hospitalization)
  Sender: FDA-Public Use
  Company Number: None

PATIENT
  Age: 61 Year
  Sex: Male
  Weight: 75.2971 kg

DRUGS (10)
  1. DOCETAXEL 65 MG/M2 IV Q 21 DAYS FOR 4 CYCLES [Suspect]
  2. TERAZOSIN [Concomitant]
  3. INSULIN [Concomitant]
  4. COMPAZINE [Concomitant]
  5. CITALOPRAM HYDROBROMIDE [Concomitant]
  6. VENLAFAXINE HCL [Concomitant]
  7. TRAZADONE [Concomitant]
  8. HYDROCORTISONE [Concomitant]
  9. KETOCONIZOLE [Concomitant]
  10. ACETOMINOPHEN [Concomitant]

REACTIONS (10)
  - ASTHENIA [None]
  - FALL [None]
  - HYPERGLYCAEMIA [None]
  - MUCOUS MEMBRANE DISORDER [None]
  - NAUSEA [None]
  - TACHYCARDIA [None]
  - THIRST [None]
  - TREATMENT NONCOMPLIANCE [None]
  - URINE ODOUR ABNORMAL [None]
  - VOMITING [None]
